FAERS Safety Report 21382129 (Version 1)
Quarter: 2022Q3

REPORT INFORMATION
  Report Type: Spontaneous
  Country: CZ (occurrence: CZ)
  Receive Date: 20220927
  Receipt Date: 20220927
  Transmission Date: 20221027
  Serious: Yes (Life-Threatening, Hospitalization, Other)
  Sender: FDA-Public Use
  Company Number: None

PATIENT
  Age: 45 Year
  Sex: Male

DRUGS (1)
  1. ACETAMINOPHEN [Suspect]
     Active Substance: ACETAMINOPHEN
     Indication: Product used for unknown indication
     Dosage: 13000 MG TAKEN IN TOTAL
     Route: 065
     Dates: start: 20200116

REACTIONS (3)
  - Intentional overdose [None]
  - Suicide attempt [None]
  - Vomiting [None]

NARRATIVE: CASE EVENT DATE: 20200116
